FAERS Safety Report 7623434-0 (Version None)
Quarter: 2011Q3

REPORT INFORMATION
  Report Type: 
  Country: None (occurrence: None)
  Receive Date: 20110719
  Receipt Date: 20110719
  Transmission Date: 20111222
  Serious: Yes (Life-Threatening, Hospitalization)
  Sender: FDA-Public Use
  Company Number: None

PATIENT
  Age: 49 Year
  Sex: Female
  Weight: 93.441 kg

DRUGS (1)
  1. PERFOROMIST [Suspect]
     Indication: ASTHMA
     Dosage: ONE VIAL TWICE DAILY NEBULIZER
     Route: 055
     Dates: start: 20110613, end: 20110618

REACTIONS (4)
  - PNEUMONIA [None]
  - ASTHMA [None]
  - OFF LABEL USE [None]
  - CONDITION AGGRAVATED [None]
